FAERS Safety Report 7567865-6 (Version None)
Quarter: 2011Q2

REPORT INFORMATION
  Report Type: 
  Country: None (occurrence: None)
  Receive Date: 20110623
  Receipt Date: 20110616
  Transmission Date: 20111010
  Serious: Yes (Hospitalization)
  Sender: FDA-Public Use
  Company Number: DE-ASTELLAS-2011EU003397

PATIENT
  Sex: Female
  Weight: 59 kg

DRUGS (1)
  1. TACROLIMUS [Suspect]
     Indication: DERMATITIS ATOPIC
     Dosage: UNK
     Route: 061
     Dates: start: 20060905

REACTIONS (3)
  - CYSTITIS [None]
  - CALCULUS BLADDER [None]
  - NEPHROLITHIASIS [None]
